FAERS Safety Report 8785451 (Version 2)
Quarter: 2012Q4

REPORT INFORMATION
  Report Type: 
  Country: CA (occurrence: CA)
  Receive Date: 20120914
  Receipt Date: 20121101
  Transmission Date: 20130627
  Serious: Yes (Other)
  Sender: FDA-Public Use
  Company Number: CA-BAYER-2012-094553

PATIENT
  Age: 13 Month
  Sex: Male
  Weight: 10 kg

DRUGS (2)
  1. KOGENATE FS [Suspect]
     Indication: HEMOPHILIA A
     Dosage: On Demand
     Route: 042
     Dates: start: 20121003, end: 20121003
  2. KOGENATE FS [Suspect]
     Indication: HEMOPHILIA A
     Dosage: 250 iu, OW

REACTIONS (3)
  - Condition aggravated [None]
  - Factor VIII inhibition [None]
  - Haemorrhage [None]
